FAERS Safety Report 8152377-1 (Version None)
Quarter: 2012Q1

REPORT INFORMATION
  Report Type: 
  Country: None (occurrence: None)
  Receive Date: 20120214
  Receipt Date: 20120206
  Transmission Date: 20120608
  Serious: Yes (Hospitalization)
  Sender: FDA-Public Use
  Company Number: 2012SP006940

PATIENT
  Age: 89 Year
  Sex: Male

DRUGS (1)
  1. CELESTONE [Suspect]
     Indication: BACK PAIN
     Dosage: 2 ML;IM
     Route: 030
     Dates: start: 20110824, end: 20110826

REACTIONS (2)
  - DISORIENTATION [None]
  - AGITATION [None]
